FAERS Safety Report 5185229-X (Version None)
Quarter: 2006Q4

REPORT INFORMATION
  Report Type: 
  Country: None (occurrence: None)
  Receive Date: 20061220
  Receipt Date: 20060626
  Transmission Date: 20070319
  Serious: No
  Sender: FDA-Public Use
  Company Number: US-GLAXOSMITHKLINE-A0610265A

PATIENT

DRUGS (1)
  1. EQUATE NTS [Suspect]

REACTIONS (4)
  - FEELING ABNORMAL [None]
  - INTENTIONAL DRUG MISUSE [None]
  - MALAISE [None]
  - NIGHTMARE [None]
